FAERS Safety Report 11319574 (Version 1)
Quarter: 2015Q3

REPORT INFORMATION
  Report Type: Spontaneous
  Country: US (occurrence: None)
  Receive Date: 20150728
  Receipt Date: 20150728
  Transmission Date: 20151125
  Serious: Yes (Life-Threatening)
  Sender: FDA-Public Use
  Company Number: None

PATIENT
  Age: 68 Year
  Sex: Female
  Weight: 81.65 kg

DRUGS (5)
  1. MUCINEX FAST-MAX SEVERE COLD [Suspect]
     Active Substance: ACETAMINOPHEN\DEXTROMETHORPHAN HYDROBROMIDE\GUAIFENESIN\PHENYLEPHRINE HYDROCHLORIDE
     Indication: RHINORRHOEA
     Dosage: 20 ML EVERY 4 HRS NO MORE THAN 6 PER DAY, LIQUID BY MOUTH
     Route: 048
     Dates: start: 20150714, end: 20150715
  2. MUCINEX FAST-MAX SEVERE COLD [Suspect]
     Active Substance: ACETAMINOPHEN\DEXTROMETHORPHAN HYDROBROMIDE\GUAIFENESIN\PHENYLEPHRINE HYDROCHLORIDE
     Indication: COUGH
     Dosage: 20 ML EVERY 4 HRS NO MORE THAN 6 PER DAY, LIQUID BY MOUTH
     Route: 048
     Dates: start: 20150714, end: 20150715
  3. 1 A DAY VITAMIN [Concomitant]
     Active Substance: VITAMINS
  4. PROVENTIL HFA [Concomitant]
     Active Substance: ALBUTEROL SULFATE
  5. MUCINEX FAST-MAX SEVERE COLD [Suspect]
     Active Substance: ACETAMINOPHEN\DEXTROMETHORPHAN HYDROBROMIDE\GUAIFENESIN\PHENYLEPHRINE HYDROCHLORIDE
     Indication: NASOPHARYNGITIS
     Dosage: 20 ML EVERY 4 HRS NO MORE THAN 6 PER DAY, LIQUID BY MOUTH
     Route: 048
     Dates: start: 20150714, end: 20150715

REACTIONS (3)
  - Rhinorrhoea [None]
  - Increased viscosity of upper respiratory secretion [None]
  - Choking [None]

NARRATIVE: CASE EVENT DATE: 20150714
